FAERS Safety Report 17455916 (Version 1)
Quarter: 2020Q1

REPORT INFORMATION
  Report Type: Spontaneous
  Country: GB (occurrence: GB)
  Receive Date: 20200225
  Receipt Date: 20200225
  Transmission Date: 20200409
  Serious: Yes (Death, Other)
  Sender: FDA-Public Use
  Company Number: GB-AMGEN-GBRSP2020029389

PATIENT

DRUGS (2)
  1. PLERIXAFOR [Concomitant]
     Active Substance: PLERIXAFOR
     Indication: AUTOLOGOUS HAEMATOPOIETIC STEM CELL TRANSPLANT
     Dosage: UNK
  2. PEGFILGRASTIM [Suspect]
     Active Substance: PEGFILGRASTIM
     Indication: AUTOLOGOUS HAEMATOPOIETIC STEM CELL TRANSPLANT
     Dosage: UNK
     Route: 065

REACTIONS (14)
  - Nervous system disorder [Unknown]
  - Cardiac disorder [Unknown]
  - Metabolic disorder [Unknown]
  - Plasma cell myeloma [Unknown]
  - Angiopathy [Unknown]
  - Malnutrition [Unknown]
  - Renal disorder [Unknown]
  - Off label use [Unknown]
  - Infection [Unknown]
  - Blood disorder [Unknown]
  - Lymphatic disorder [Unknown]
  - Death [Fatal]
  - Adverse event [Unknown]
  - Gastrointestinal disorder [Unknown]
